FAERS Safety Report 7532549-7 (Version None)
Quarter: 2011Q2

REPORT INFORMATION
  Report Type: 
  Country: None (occurrence: None)
  Receive Date: 20110608
  Receipt Date: 20110527
  Transmission Date: 20111010
  Serious: Yes (Other)
  Sender: FDA-Public Use
  Company Number: PHHY2011US47394

PATIENT
  Sex: Female

DRUGS (1)
  1. GILENYA [Suspect]
     Indication: MULTIPLE SCLEROSIS
     Dosage: 0.5 MG, QD
     Route: 048
     Dates: start: 20110519

REACTIONS (7)
  - GENERALISED OEDEMA [None]
  - MUSCLE SPASMS [None]
  - DYSARTHRIA [None]
  - RESTLESS LEGS SYNDROME [None]
  - LIP SWELLING [None]
  - SWOLLEN TONGUE [None]
  - OEDEMA MOUTH [None]
